FAERS Safety Report 5512742-5 (Version None)
Quarter: 2007Q4

REPORT INFORMATION
  Report Type: 
  Country: None (occurrence: None)
  Receive Date: 20071112
  Receipt Date: 20071030
  Transmission Date: 20080405
  Serious: Yes (Hospitalization)
  Sender: FDA-Public Use
  Company Number: IT-ROCHE-528419

PATIENT
  Age: 64 Year
  Sex: Female

DRUGS (3)
  1. ROCEPHIN [Suspect]
     Indication: PNEUMONIA
     Dosage: FORM: VIAL.
     Route: 042
     Dates: start: 20071022, end: 20071022
  2. KLACID [Suspect]
     Indication: PNEUMONIA
     Route: 048
     Dates: start: 20071022, end: 20071023
  3. CLEXANE [Concomitant]
     Dosage: FORM: VIAL.

REACTIONS (4)
  - DYSPNOEA [None]
  - GENERALISED ERYTHEMA [None]
  - PRURITUS [None]
  - URTICARIA [None]
